FAERS Safety Report 13449892 (Version 1)
Quarter: 2017Q2

REPORT INFORMATION
  Report Type: Spontaneous
  Country: US (occurrence: US)
  Receive Date: 20170417
  Receipt Date: 20170417
  Transmission Date: 20170830
  Serious: No
  Sender: FDA-Public Use
  Company Number: US-BION-20160218

PATIENT
  Age: 61 Year
  Sex: Male
  Weight: 145.15 kg

DRUGS (3)
  1. BAYER GENUINE ASPIRIN [Concomitant]
     Active Substance: ASPIRIN
     Indication: CARDIOVASCULAR EVENT PROPHYLAXIS
  2. BAYER BACK AND BODY EXTRA STRENGTH [Suspect]
     Active Substance: ASPIRIN\CAFFEINE
     Dosage: 2 DOSAGE FORMS TAKEN AS NEEDED
  3. ALEVE [Suspect]
     Active Substance: NAPROXEN SODIUM
     Dosage: 1 DOSAGE FORM AS NEEDED
     Route: 048

REACTIONS (2)
  - Product use in unapproved indication [Unknown]
  - Drug effect incomplete [Recovered/Resolved]
